FAERS Safety Report 7468626-9 (Version None)
Quarter: 2011Q2

REPORT INFORMATION
  Report Type: 
  Country: None (occurrence: None)
  Receive Date: 20110510
  Receipt Date: 20110113
  Transmission Date: 20111010
  Serious: No
  Sender: FDA-Public Use
  Company Number: US-BAYER-2011-005190

PATIENT
  Age: 56 Year
  Sex: Female

DRUGS (5)
  1. AVELOX [Suspect]
     Indication: ACUTE SINUSITIS
     Dosage: 400 MG, QD
     Route: 048
     Dates: start: 20110102
  2. DIAZIDE [Concomitant]
  3. LEVOXYL [Concomitant]
  4. LEXAPRO [Concomitant]
  5. VALIUM [Concomitant]

REACTIONS (6)
  - LETHARGY [None]
  - ODYNOPHAGIA [None]
  - ASTHENIA [None]
  - FEELING ABNORMAL [None]
  - MYALGIA [None]
  - DIZZINESS [None]
